FAERS Safety Report 15225379 (Version 1)
Quarter: 2018Q3

REPORT INFORMATION
  Report Type: Spontaneous
  Country: FR (occurrence: FR)
  Receive Date: 20180801
  Receipt Date: 20180801
  Transmission Date: 20181010
  Serious: Yes (Hospitalization)
  Sender: FDA-Public Use
  Company Number: FR-TEVA-2018-FR-933293

PATIENT
  Age: 28 Year
  Sex: Male
  Weight: 72 kg

DRUGS (9)
  1. ATARAX [Concomitant]
     Active Substance: HYDROXYZINE HYDROCHLORIDE
     Indication: INSOMNIA
     Dosage: 75 MILLIGRAM DAILY; 1?0?2
     Route: 048
     Dates: start: 2015
  2. LOXAPAC [Suspect]
     Active Substance: LOXAPINE
     Indication: PSYCHOTIC DISORDER
     Dosage: 140 GTT DAILY;
     Route: 048
     Dates: start: 2016, end: 20180307
  3. CIRCADIN [Concomitant]
     Active Substance: MELATONIN
     Indication: INSOMNIA
     Dosage: 2 MILLIGRAM DAILY;
     Route: 048
     Dates: start: 2016
  4. RISPERIDONE. [Suspect]
     Active Substance: RISPERIDONE
     Indication: PSYCHOTIC DISORDER
     Dosage: 18 MILLIGRAM DAILY;
     Route: 048
     Dates: start: 2007, end: 20180307
  5. TRANXENE [Concomitant]
     Active Substance: CLORAZEPATE DIPOTASSIUM
     Indication: ANXIETY
     Dosage: 40 MILLIGRAM DAILY;
     Route: 048
     Dates: start: 2016
  6. VALIUM [Concomitant]
     Active Substance: DIAZEPAM
     Indication: EPILEPSY
     Dosage: 40 MILLIGRAM DAILY; 10 MG : 1X4 DAY
     Route: 048
     Dates: start: 2015
  7. CETIRIZINE (DICHLORHYDRATE DE) [Concomitant]
     Active Substance: CETIRIZINE HYDROCHLORIDE
     Indication: HYPERSENSITIVITY
     Dosage: 10 MILLIGRAM DAILY;
     Route: 048
     Dates: start: 2016
  8. PULMODEXANE 30 MG, COMPRIM? PELLICUL? [Concomitant]
     Indication: PRODUCT USED FOR UNKNOWN INDICATION
     Dosage: 210 MILLIGRAM DAILY; 2?3?2
     Route: 048
     Dates: start: 2007
  9. LAMICTAL [Concomitant]
     Active Substance: LAMOTRIGINE
     Indication: EPILEPSY
     Dosage: 400 MILLIGRAM DAILY; 2?0?2
     Route: 048
     Dates: start: 2007

REACTIONS (1)
  - Colitis ischaemic [Not Recovered/Not Resolved]

NARRATIVE: CASE EVENT DATE: 20180307
